FAERS Safety Report 18993100 (Version 3)
Quarter: 2021Q2

REPORT INFORMATION
  Report Type: Spontaneous
  Country: JP (occurrence: JP)
  Receive Date: 20210310
  Receipt Date: 20210607
  Transmission Date: 20210717
  Serious: Yes (Hospitalization, Other)
  Sender: FDA-Public Use
  Company Number: JP-GLAXOSMITHKLINE-JP2021057972

PATIENT
  Age: 52 Year
  Sex: Male

DRUGS (2)
  1. AVOLVE [Suspect]
     Active Substance: DUTASTERIDE
     Indication: ANDROGENETIC ALOPECIA
     Dosage: 0.5 MG, QD
     Route: 048
     Dates: start: 20191031, end: 20200430
  2. AVOLVE [Suspect]
     Active Substance: DUTASTERIDE
     Dosage: 0.5 MG, QD, 2?MONTH SUPPLY
     Route: 048
     Dates: start: 20200430

REACTIONS (4)
  - Off label use [Unknown]
  - Therapy cessation [Unknown]
  - Oesophageal carcinoma [Unknown]
  - Product use in unapproved indication [Unknown]

NARRATIVE: CASE EVENT DATE: 20191031
